FAERS Safety Report 6617317-2 (Version None)
Quarter: 2010Q1

REPORT INFORMATION
  Report Type: 
  Country: None (occurrence: None)
  Receive Date: 20100307
  Receipt Date: 20091113
  Transmission Date: 20100710
  Serious: No
  Sender: FDA-Public Use
  Company Number: CH-BAYER-200937580GPV

PATIENT
  Age: 24 Year
  Sex: Female
  Weight: 53 kg

DRUGS (1)
  1. YAZ [Suspect]
     Indication: CONTRACEPTION
     Route: 048
     Dates: start: 20090906, end: 20090924

REACTIONS (17)
  - ASTHENIA [None]
  - CHILLS [None]
  - CRYING [None]
  - DECREASED APPETITE [None]
  - DEPERSONALISATION [None]
  - DYSPHAGIA [None]
  - DYSPNOEA [None]
  - DYSPNOEA EXERTIONAL [None]
  - DYSURIA [None]
  - FEELING ABNORMAL [None]
  - HYPERHIDROSIS [None]
  - INSOMNIA [None]
  - PALPITATIONS [None]
  - PSYCHOMOTOR HYPERACTIVITY [None]
  - TACHYCARDIA [None]
  - TREMOR [None]
  - VERTIGO [None]
